FAERS Safety Report 6574276-9 (Version None)
Quarter: 2010Q1

REPORT INFORMATION
  Report Type: 
  Country: None (occurrence: None)
  Receive Date: 20100201
  Receipt Date: 20100119
  Transmission Date: 20100710
  Serious: Yes (Congenital Anomaly)
  Sender: FDA-Public Use
  Company Number: DSM-2010-00094

PATIENT
  Sex: Female
  Weight: 3.9 kg

DRUGS (16)
  1. OLMESARTAN MEDOXOMIL [Suspect]
     Indication: DRUG USE FOR UNKNOWN INDICATION
     Dosage: TRANSPLACENTAL
     Route: 064
     Dates: end: 20090401
  2. LYRICA [Suspect]
     Indication: DRUG USE FOR UNKNOWN INDICATION
     Dosage: 75 MG, TRANSPLACENTAL
     Route: 064
     Dates: end: 20090401
  3. DOXIUM (CALCIUM DOBESILATE) (CALCIUM DOBESILATE) [Suspect]
     Indication: DRUG USE FOR UNKNOWN INDICATION
     Dosage: 750 MG, TRANSPLACENTAL
     Route: 064
     Dates: end: 20090401
  4. DICYNONE (ETAMSILATE) (ETAMSILATE) [Suspect]
     Indication: DRUG USE FOR UNKNOWN INDICATION
     Dosage: TRANSPLACENTAL
     Route: 064
     Dates: end: 20090401
  5. PAROXETINE HYDROCHLORIDE [Suspect]
     Indication: DRUG USE FOR UNKNOWN INDICATION
     Dosage: 40 MG, TRANSPLACENTAL
     Route: 064
  6. TERCIAN (CYCMEMAZINE) (CYAMEMAZINE) [Suspect]
     Indication: DRUG USE FOR UNKNOWN INDICATION
     Dosage: TRANSPLACENTAL
     Route: 064
  7. PRAZEPAM [Suspect]
     Indication: DRUG USE FOR UNKNOWN INDICATION
     Dosage: TRANSPLACENTAL
     Route: 064
     Dates: end: 20090401
  8. CITALOPRAM HYDROBROMIDE [Suspect]
     Dosage: TRANSPLACENTAL
     Route: 064
     Dates: start: 20090401, end: 20090101
  9. DEXERYL (GLYCEROL/PARAFFIC) (SOFT PARAFFIN AND FAT PRODUCTS) [Concomitant]
  10. APIDRA (INSULIN GLULISINE) (INSULIN GLULISINE) [Concomitant]
  11. FOLIO (FOLIC ACID) (FOLIC ACID) [Concomitant]
  12. MULTI0VITAMINS VITAFIT (FOLIC ACID, CALCIUM PANTOTHENATE, VITAMINS NOS [Concomitant]
  13. NOVORAPID (INSULIN ASPART) (INSULIN ASPART) [Concomitant]
  14. ANAFRANIL (CLOMIPRAMINE HYDROCHLORIDE) (CLOMIPRAMINE HYDROCHLORIDE) [Concomitant]
  15. DAFALAGAN (PARACETAMOL) (PARACETAMOL) [Concomitant]
  16. OROCAL (CALCIUM CARBONATE) (CALCIUM CARBONATE) [Concomitant]

REACTIONS (5)
  - ATRIAL SEPTAL DEFECT [None]
  - CAESAREAN SECTION [None]
  - CONGENITAL MUSCULOSKELETAL ANOMALY [None]
  - MATERNAL DEATH AFFECTING FOETUS [None]
  - PREMATURE BABY [None]
